FAERS Safety Report 11749531 (Version 1)
Quarter: 2015Q4

REPORT INFORMATION
  Report Type: Spontaneous
  Country: US (occurrence: US)
  Receive Date: 20151118
  Receipt Date: 20151118
  Transmission Date: 20160304
  Serious: Yes (Hospitalization, Other)
  Sender: FDA-Public Use
  Company Number: US-ACTAVIS-2015-24900

PATIENT
  Age: 61 Year
  Sex: Male

DRUGS (3)
  1. CISPLATIN. [Concomitant]
     Active Substance: CISPLATIN
     Indication: LARYNGEAL SQUAMOUS CELL CARCINOMA
     Dosage: UNK, CYCLICAL
     Route: 065
  2. 5 FLUOROURACIL                     /00098801/ [Concomitant]
     Active Substance: FLUOROURACIL
     Indication: LARYNGEAL SQUAMOUS CELL CARCINOMA
     Dosage: UNK, CYCLICAL
     Route: 065
  3. DOCETAXEL (ACTAVIS) [Suspect]
     Active Substance: DOCETAXEL
     Indication: LARYNGEAL SQUAMOUS CELL CARCINOMA
     Dosage: UNK UNK, CYCLICAL
     Route: 065

REACTIONS (1)
  - Pulmonary toxicity [Recovered/Resolved]
